FAERS Safety Report 25037243 (Version 1)
Quarter: 2025Q1

REPORT INFORMATION
  Report Type: Spontaneous
  Country: JP (occurrence: JP)
  Receive Date: 20250304
  Receipt Date: 20250304
  Transmission Date: 20250409
  Serious: Yes (Other)
  Sender: PFIZER
  Company Number: JP-ONO-2025JP003603

PATIENT
  Age: 8 Decade
  Sex: Male

DRUGS (4)
  1. BRAFTOVI [Suspect]
     Active Substance: ENCORAFENIB
     Indication: Thyroid cancer
     Route: 048
     Dates: start: 20250116
  2. BRAFTOVI [Suspect]
     Active Substance: ENCORAFENIB
     Route: 048
  3. MEKTOVI [Suspect]
     Active Substance: BINIMETINIB
     Indication: Thyroid cancer
     Route: 048
     Dates: start: 20250116
  4. MEKTOVI [Suspect]
     Active Substance: BINIMETINIB
     Route: 048

REACTIONS (3)
  - Malaise [Unknown]
  - Abdominal symptom [Unknown]
  - Eye disorder [Unknown]
